FAERS Safety Report 8077269-8 (Version None)
Quarter: 2012Q1

REPORT INFORMATION
  Report Type: 
  Country: None (occurrence: None)
  Receive Date: 20120127
  Receipt Date: 20120116
  Transmission Date: 20120608
  Serious: Yes (Other)
  Sender: FDA-Public Use
  Company Number: US-ACTELION-A-CH2011-43604

PATIENT
  Age: 6 Year
  Sex: Female

DRUGS (2)
  1. ACETYLCYSTEINE [Concomitant]
     Dosage: UNK MG, UNK
     Route: 048
  2. ZAVESCA [Suspect]
     Indication: NIEMANN-PICK DISEASE
     Dosage: 100 MG, BID
     Route: 048

REACTIONS (11)
  - VISUAL ACUITY REDUCED [None]
  - PSYCHOMOTOR SKILLS IMPAIRED [None]
  - ATAXIA [None]
  - MEMORY IMPAIRMENT [None]
  - NIEMANN-PICK DISEASE [None]
  - STEREOTYPY [None]
  - CONDITION AGGRAVATED [None]
  - ANXIETY [None]
  - EYE MOVEMENT DISORDER [None]
  - COGNITIVE DISORDER [None]
  - SPEECH DISORDER [None]
